FAERS Safety Report 7315377-7 (Version None)
Quarter: 2011Q1

REPORT INFORMATION
  Report Type: 
  Country: None (occurrence: None)
  Receive Date: 20110119
  Receipt Date: 20100728
  Transmission Date: 20110831
  Serious: Yes (Hospitalization)
  Sender: FDA-Public Use
  Company Number: A-NJ2010-38541

PATIENT
  Age: 27 Year
  Sex: Female

DRUGS (3)
  1. TRACLEER [Suspect]
  2. TRACLEER [Suspect]
     Indication: PULMONARY ARTERIAL HYPERTENSION
     Dosage: ORAL, 125 MG, BID, ORAL
     Route: 048
     Dates: start: 20090817, end: 20101101
  3. TRACLEER [Suspect]
     Indication: PULMONARY ARTERIAL HYPERTENSION
     Dosage: ORAL, 125 MG, BID, ORAL
     Route: 048
     Dates: start: 20100101

REACTIONS (1)
  - BLOOD PRESSURE DECREASED [None]
